FAERS Safety Report 9645534 (Version 1)
Quarter: 2013Q4

REPORT INFORMATION
  Report Type: Spontaneous
  Country: US (occurrence: None)
  Receive Date: 20131023
  Receipt Date: 20131023
  Transmission Date: 20140711
  Serious: Yes (Hospitalization)
  Sender: FDA-Public Use
  Company Number: 1007131-292-AW

PATIENT
  Age: 15 Year
  Sex: Female
  Weight: 40.82 kg

DRUGS (5)
  1. OXCARBAZEPINE [Suspect]
     Indication: DEPRESSION
     Dosage: QD X3DAY BIDTHEREAFTER
     Dates: start: 20130926, end: 20130929
  2. CONCERTA [Concomitant]
  3. RISPERIDONE [Concomitant]
  4. ABILIFY [Concomitant]
  5. ZOLOFT [Concomitant]

REACTIONS (4)
  - Vision blurred [None]
  - Pruritus [None]
  - Hallucination [None]
  - Convulsion [None]
